FAERS Safety Report 23821050 (Version 3)
Quarter: 2024Q3

REPORT INFORMATION
  Report Type: Spontaneous
  Country: FR (occurrence: FR)
  Receive Date: 20240506
  Receipt Date: 20240828
  Transmission Date: 20241016
  Serious: Yes (Disabling)
  Sender: EMD SERONO INC
  Company Number: None

PATIENT
  Age: 35 Year
  Sex: Female

DRUGS (4)
  1. CETROTIDE [Suspect]
     Active Substance: CETRORELIX ACETATE
     Indication: Assisted fertilisation
     Dosage: POWDER AND SOLVENT FOR SOLUTION FOR INJECTION
     Route: 058
     Dates: start: 20230625, end: 20230625
  2. CHORIOGONADOTROPIN ALFA [Suspect]
     Active Substance: CHORIOGONADOTROPIN ALFA
     Indication: Assisted fertilisation
     Dosage: POWDER AND SOLVENT FOR SOLUTION FOR INJECTION
     Route: 058
     Dates: start: 20230627, end: 20230627
  3. UTROGESTAN [Suspect]
     Active Substance: PROGESTERONE
     Indication: Assisted fertilisation
     Dosage: SOFT ORAL OR VAGINAL CAPSULE
     Route: 048
     Dates: start: 20230629, end: 20230719
  4. MENOPUR [Suspect]
     Active Substance: FOLLITROPIN\LUTEINIZING HORMONE
     Indication: Assisted fertilisation
     Dosage: SOLUTION FOR INJECTION IN A PRE-FILLED PEN
     Route: 058
     Dates: start: 20230617, end: 20230626

REACTIONS (2)
  - Retinopathy [Not Recovered/Not Resolved]
  - Condition aggravated [Not Recovered/Not Resolved]

NARRATIVE: CASE EVENT DATE: 20230714
